FAERS Safety Report 12430189 (Version 1)
Quarter: 2016Q2

REPORT INFORMATION
  Report Type: Spontaneous
  Country: MX (occurrence: MX)
  Receive Date: 20160602
  Receipt Date: 20160602
  Transmission Date: 20160815
  Serious: Yes (Other)
  Sender: FDA-Public Use
  Company Number: MX-SA-2016SA104207

PATIENT
  Age: 65 Year
  Sex: Male
  Weight: 120 kg

DRUGS (5)
  1. OROXADIN [Suspect]
     Active Substance: CIPROFIBRATE
     Indication: TYPE 2 DIABETES MELLITUS
     Route: 048
     Dates: start: 201604
  2. IRBESARTAN. [Suspect]
     Active Substance: IRBESARTAN
     Indication: HYPERTENSION
     Dosage: STRENGTH: 300MG
     Route: 048
     Dates: start: 2015
  3. MICCIL [Concomitant]
     Indication: HYPERTENSION
     Dosage: 1 MG TABLET
     Route: 048
     Dates: start: 201605
  4. OXYGEN. [Concomitant]
     Active Substance: OXYGEN
     Route: 055
     Dates: start: 201411
  5. LANTUS [Suspect]
     Active Substance: INSULIN GLARGINE
     Indication: TYPE 2 DIABETES MELLITUS
     Route: 058
     Dates: start: 2013

REACTIONS (2)
  - Hypertension [Unknown]
  - Angina pectoris [Not Recovered/Not Resolved]

NARRATIVE: CASE EVENT DATE: 2015
